FAERS Safety Report 4953513-8 (Version None)
Quarter: 2006Q1

REPORT INFORMATION
  Report Type: 
  Country: None (occurrence: None)
  Receive Date: 20060324
  Receipt Date: 20060316
  Transmission Date: 20060701
  Serious: Yes (Other)
  Sender: FDA-Public Use
  Company Number: CA-ROCHE-440522

PATIENT
  Age: 52 Year
  Sex: Male
  Weight: 52 kg

DRUGS (5)
  1. CELLCEPT [Suspect]
     Indication: DRUG USE FOR UNKNOWN INDICATION
     Route: 065
  2. NEORAL [Suspect]
     Indication: DRUG USE FOR UNKNOWN INDICATION
     Route: 065
  3. RAPAMUNE [Suspect]
     Indication: DRUG USE FOR UNKNOWN INDICATION
     Route: 065
  4. THYMOGLOBULIN [Concomitant]
  5. CORTICOSTEROIDS [Concomitant]

REACTIONS (8)
  - ARTHRALGIA [None]
  - BLOOD CREATININE INCREASED [None]
  - DYSPNOEA [None]
  - ENDOCARDITIS [None]
  - HAEMOLYTIC URAEMIC SYNDROME [None]
  - PROTEINURIA [None]
  - RENAL FAILURE [None]
  - TRANSPLANT REJECTION [None]
